FAERS Safety Report 7739462-0 (Version None)
Quarter: 2011Q3

REPORT INFORMATION
  Report Type: 
  Country: None (occurrence: None)
  Receive Date: 20110909
  Receipt Date: 20110826
  Transmission Date: 20111222
  Serious: Yes (Hospitalization)
  Sender: FDA-Public Use
  Company Number: GB-MYLANLABS-2011S1017980

PATIENT
  Sex: Female

DRUGS (1)
  1. DOXAZOSIN MESYLATE [Suspect]
     Indication: PRODUCT USED FOR UNKNOWN INDICATION

REACTIONS (2)
  - BLOOD PRESSURE DECREASED [None]
  - DRUG DISPENSING ERROR [None]
